FAERS Safety Report 24244135 (Version 1)
Quarter: 2024Q3

REPORT INFORMATION
  Report Type: Spontaneous
  Country: US (occurrence: US)
  Receive Date: 20240823
  Receipt Date: 20240823
  Transmission Date: 20241017
  Serious: Yes (Other)
  Sender: TAIHO ONCOLOGY INC
  Company Number: US-TAIHOP-2024-008003

PATIENT
  Age: 44 Year
  Sex: Male
  Weight: 73.48 kg

DRUGS (1)
  1. LONSURF [Suspect]
     Active Substance: TIPIRACIL HYDROCHLORIDE\TRIFLURIDINE
     Indication: Colon cancer
     Dosage: CYCLE 1?FORM STRENGTH 15MG AND 20MG
     Route: 048

REACTIONS (2)
  - Stoma prolapse [Unknown]
  - Inappropriate schedule of product administration [Unknown]
